FAERS Safety Report 12916836 (Version 1)
Quarter: 2016Q4

REPORT INFORMATION
  Report Type: Spontaneous
  Country: US (occurrence: US)
  Receive Date: 20161107
  Receipt Date: 20161107
  Transmission Date: 20170207
  Serious: No
  Sender: FDA-Public Use
  Company Number: US-JAZZ-2016-US-017508

PATIENT

DRUGS (31)
  1. ESTRACE [Concomitant]
     Active Substance: ESTRADIOL
  2. CALCIUM MAGNESIUM                  /00591201/ [Concomitant]
  3. AMOXICILLIN. [Concomitant]
     Active Substance: AMOXICILLIN
  4. XYREM [Suspect]
     Active Substance: SODIUM OXYBATE
     Dosage: DOSE ADJUSTMENTS
     Route: 048
     Dates: start: 200812, end: 201309
  5. MULTIVITAMINS                      /00116001/ [Concomitant]
  6. QUININE SULFATE. [Concomitant]
     Active Substance: QUININE SULFATE
  7. CLOBETASOL [Concomitant]
     Active Substance: CLOBETASOL
  8. TRIAMCINOLONE [Concomitant]
     Active Substance: TRIAMCINOLONE
  9. UREA. [Concomitant]
     Active Substance: UREA
  10. CIMETIDINE [Concomitant]
     Active Substance: CIMETIDINE
  11. TRIMETHOPRIM. [Concomitant]
     Active Substance: TRIMETHOPRIM
  12. MAGNESIUM OXIDE. [Concomitant]
     Active Substance: MAGNESIUM OXIDE
  13. QUINAPRIL. [Concomitant]
     Active Substance: QUINAPRIL
  14. VICODIN [Concomitant]
     Active Substance: ACETAMINOPHEN\HYDROCODONE BITARTRATE
  15. ZYRTEC [Concomitant]
     Active Substance: CETIRIZINE HYDROCHLORIDE
  16. XYREM [Suspect]
     Active Substance: SODIUM OXYBATE
     Dosage: 4.5 G, BID
     Route: 048
     Dates: start: 201309
  17. LOMOTIL [Concomitant]
     Active Substance: ATROPINE SULFATE\DIPHENOXYLATE HYDROCHLORIDE
  18. ASPIRIN                            /00002701/ [Concomitant]
     Active Substance: ASPIRIN
  19. MIRAPEX [Concomitant]
     Active Substance: PRAMIPEXOLE DIHYDROCHLORIDE
  20. ZANAFLEX [Concomitant]
     Active Substance: TIZANIDINE HYDROCHLORIDE
  21. XYREM [Suspect]
     Active Substance: SODIUM OXYBATE
     Indication: NARCOLEPSY
     Dosage: 2.25 G, BID
     Route: 048
     Dates: start: 200810, end: 200812
  22. MYRBETRIQ [Concomitant]
     Active Substance: MIRABEGRON
  23. PHENTERMINE. [Concomitant]
     Active Substance: PHENTERMINE
  24. PROGESTERONE. [Concomitant]
     Active Substance: PROGESTERONE
  25. CLONIDINE HCL [Concomitant]
     Active Substance: CLONIDINE HYDROCHLORIDE
  26. FLONASE                            /00908302/ [Concomitant]
     Active Substance: MOMETASONE FUROATE
  27. PROVIGIL [Concomitant]
     Active Substance: MODAFINIL
  28. SYNTHROID [Concomitant]
     Active Substance: LEVOTHYROXINE SODIUM
  29. TRAMADOL HCL [Concomitant]
     Active Substance: TRAMADOL HYDROCHLORIDE
  30. NEURONTIN [Concomitant]
     Active Substance: GABAPENTIN
  31. DICLOFENAC SODIUM. [Concomitant]
     Active Substance: DICLOFENAC SODIUM

REACTIONS (1)
  - Intentional product use issue [Unknown]
